FAERS Safety Report 5140469-0 (Version None)
Quarter: 2006Q4

REPORT INFORMATION
  Report Type: 
  Country: None (occurrence: None)
  Receive Date: 20061031
  Receipt Date: 20060829
  Transmission Date: 20070319
  Serious: Yes (Other)
  Sender: FDA-Public Use
  Company Number: US-NOVOPROD-256487

PATIENT
  Sex: Female

DRUGS (6)
  1. ACTIVELLA [Suspect]
     Indication: MENOPAUSAL SYMPTOMS
     Dosage: UNKNOWN
  2. PREMPRO [Suspect]
     Indication: MENOPAUSAL SYMPTOMS
     Dosage: UNKNOWN
  3. ORTHO-EST [Suspect]
     Indication: MENOPAUSAL SYMPTOMS
     Dosage: UNKNOWN
  4. PROMETRIUM [Suspect]
     Indication: MENOPAUSAL SYMPTOMS
     Dosage: UNKNOWN
  5. ESTROPIPATE [Suspect]
     Indication: MENOPAUSAL SYMPTOMS
     Dosage: UNKNOWN
  6. MEDROXYPROGESTERONE ACETATE [Suspect]
     Indication: MENOPAUSAL SYMPTOMS
     Dosage: UNKNOWN

REACTIONS (1)
  - BREAST CANCER METASTATIC [None]
